FAERS Safety Report 12184774 (Version 5)
Quarter: 2016Q2

REPORT INFORMATION
  Report Type: Spontaneous
  Country: US (occurrence: US)
  Receive Date: 20160316
  Receipt Date: 20160516
  Transmission Date: 20160815
  Serious: No
  Sender: FDA-Public Use
  Company Number: US-PFIZER INC-2016143610

PATIENT
  Age: 84 Year
  Sex: Female
  Weight: 64 kg

DRUGS (3)
  1. IBRANCE [Suspect]
     Active Substance: PALBOCICLIB
     Indication: BREAST CANCER METASTATIC
     Dosage: 100 MG, CYCLIC (DAYS 1-21 Q 28 DAYS)
     Route: 048
     Dates: start: 20160217
  2. IBRANCE [Suspect]
     Active Substance: PALBOCICLIB
     Dosage: 100 MG, CYCLIC (D1-D14 THEN OFF 14 DAYS)
     Route: 048
     Dates: end: 201604
  3. IBRANCE [Suspect]
     Active Substance: PALBOCICLIB
     Dosage: 100 MG, CYCLIC (DAY 1-14 Q21 DAYS)
     Route: 048
     Dates: start: 20160317

REACTIONS (11)
  - Feeling abnormal [Unknown]
  - Nausea [Not Recovered/Not Resolved]
  - Breast cancer metastatic [Unknown]
  - Decreased appetite [Unknown]
  - Oral pain [Unknown]
  - Constipation [Not Recovered/Not Resolved]
  - Vomiting [Unknown]
  - Diarrhoea [Unknown]
  - Weight decreased [Unknown]
  - Asthenia [Unknown]
  - Disease progression [Unknown]

NARRATIVE: CASE EVENT DATE: 20160505
